FAERS Safety Report 4301145-7 (Version None)
Quarter: 2004Q1

REPORT INFORMATION
  Report Type: 
  Country: None (occurrence: None)
  Receive Date: 20040219
  Receipt Date: 20040204
  Transmission Date: 20041129
  Serious: Yes (Death)
  Sender: FDA-Public Use
  Company Number: US066146

PATIENT
  Age: 47 Year
  Sex: Female

DRUGS (14)
  1. ENBREL [Suspect]
     Indication: RHEUMATOID ARTHRITIS
     Dosage: 25 MG, 2 IN 1 WEEKS, SC
     Route: 058
     Dates: start: 20010301, end: 20030801
  2. FUROSEMIDE [Concomitant]
  3. ARANESP [Concomitant]
  4. ENALAPRIL MALEATE [Concomitant]
  5. INSULIN INJECTION, ISOPHANE [Concomitant]
  6. PARACETAMOL [Concomitant]
  7. INSULIN [Concomitant]
  8. ALFACALCIDOL [Concomitant]
  9. OMEPRAZOLE [Concomitant]
  10. CALCIUM [Concomitant]
  11. VITAMIN B COMPLEX CAP [Concomitant]
  12. HYDROXYCARBAMIDE [Concomitant]
  13. TRAMADOL HYDROCHLORIDE [Concomitant]
  14. VENOFER [Concomitant]

REACTIONS (2)
  - ARTHRITIS BACTERIAL [None]
  - CORONARY ARTERY ATHEROSCLEROSIS [None]
